FAERS Safety Report 7498934-7 (Version None)
Quarter: 2011Q2

REPORT INFORMATION
  Report Type: 
  Country: None (occurrence: None)
  Receive Date: 20110524
  Receipt Date: 20110512
  Transmission Date: 20111010
  Serious: Yes (Other)
  Sender: FDA-Public Use
  Company Number: US-JNJFOC-20110509406

PATIENT
  Age: 19 Year
  Sex: Female

DRUGS (6)
  1. CYTARABINE [Suspect]
     Indication: BURKITT'S LYMPHOMA
     Route: 037
  2. CYCLOPHOSPHAMIDE [Suspect]
     Indication: BURKITT'S LYMPHOMA
     Route: 065
  3. DOXORUBICIN HYDROCHLORIDE [Suspect]
     Indication: BURKITT'S LYMPHOMA
     Route: 042
  4. VINCRISTINE [Suspect]
     Indication: BURKITT'S LYMPHOMA
     Route: 065
  5. PREDNISONE [Suspect]
     Indication: BURKITT'S LYMPHOMA
     Route: 065
  6. RITUXIMAB [Suspect]
     Indication: BURKITT'S LYMPHOMA
     Route: 065

REACTIONS (2)
  - DRUG EXPOSURE DURING PREGNANCY [None]
  - DEVICE RELATED SEPSIS [None]
